FAERS Safety Report 23681053 (Version 1)
Quarter: 2024Q1

REPORT INFORMATION
  Report Type: Spontaneous
  Country: US (occurrence: US)
  Receive Date: 20240328
  Receipt Date: 20240328
  Transmission Date: 20240410
  Serious: Yes (Other)
  Sender: FDA-Public Use
  Company Number: US-ALKEM LABORATORIES LIMITED-US-ALKEM-2024-05583

PATIENT
  Age: 35 Year
  Sex: Female

DRUGS (2)
  1. ISONIAZID [Suspect]
     Active Substance: ISONIAZID
     Indication: Latent tuberculosis
     Dosage: 900 MILLIGRAM, ONCE WEEKLY
     Route: 065
  2. RIFAPENTINE [Suspect]
     Active Substance: RIFAPENTINE
     Indication: Latent tuberculosis
     Dosage: 900 MILLIGRAM, ONCE WEEKLY
     Route: 065

REACTIONS (1)
  - Syncope [Recovered/Resolved]
